FAERS Safety Report 13020657 (Version 1)
Quarter: 2016Q4

REPORT INFORMATION
  Report Type: Spontaneous
  Country: None (occurrence: US)
  Receive Date: 20161212
  Receipt Date: 20161212
  Transmission Date: 20170207
  Serious: No
  Sender: FDA-Public Use
  Company Number: US-MATRIXX INITIATIVES, INC.-1060716

PATIENT
  Age: 61 Year
  Weight: 84.09 kg

DRUGS (2)
  1. SIMVASTATIN. [Concomitant]
     Active Substance: SIMVASTATIN
  2. ZICAM COLD REMEDY NASAL GEL [Suspect]
     Active Substance: ZINC ACETATE\ZINC GLUCONATE
     Route: 045

REACTIONS (1)
  - Anosmia [None]
